FAERS Safety Report 22065541 (Version 1)
Quarter: 2023Q1

REPORT INFORMATION
  Report Type: Report from Study
  Country: KR (occurrence: KR)
  Receive Date: 20230306
  Receipt Date: 20230306
  Transmission Date: 20230417
  Serious: Yes (Death, Other)
  Sender: FDA-Public Use
  Company Number: KR-PFIZER INC-PV202300040648

PATIENT

DRUGS (2)
  1. PACLITAXEL [Suspect]
     Active Substance: PACLITAXEL
     Indication: Cholangiocarcinoma
     Dosage: 80 MG/M2, DAY 1, 8, 15, EVERY 4 HOURS, WEEKLY
     Route: 042
  2. ASCIMINIB [Suspect]
     Active Substance: ASCIMINIB
     Indication: Cholangiocarcinoma

REACTIONS (1)
  - Pneumonia [Fatal]
